FAERS Safety Report 20978166 (Version 2)
Quarter: 2022Q2

REPORT INFORMATION
  Report Type: Spontaneous
  Country: US (occurrence: US)
  Receive Date: 20220618
  Receipt Date: 20220625
  Transmission Date: 20220720
  Serious: Yes (Hospitalization, Other)
  Sender: FDA-Public Use
  Company Number: US-Accord-266457

PATIENT
  Age: 63 Year
  Sex: Male

DRUGS (4)
  1. CLOZAPINE [Suspect]
     Active Substance: CLOZAPINE
     Indication: Schizophrenia
     Dosage: AT BEDTIME
  2. HALOPERIDOL [Concomitant]
     Active Substance: HALOPERIDOL
     Dosage: AT BEDTIME, SUBSEQUENTLY, HALOPERIDOL WAS APPROPRIATELY INCREASED
  3. PHENYTOIN [Concomitant]
     Active Substance: PHENYTOIN
     Dosage: AND 300 MG AT BEDTIME
  4. RIVAROXABAN [Concomitant]
     Active Substance: RIVAROXABAN

REACTIONS (7)
  - Hypotension [Recovering/Resolving]
  - Sedation [Recovered/Resolved]
  - Gait disturbance [Recovered/Resolved]
  - Loss of consciousness [Recovered/Resolved]
  - Treatment noncompliance [Unknown]
  - Mental status changes [Recovering/Resolving]
  - Drug dose titration not performed [Unknown]
